FAERS Safety Report 8788737 (Version 4)
Quarter: 2012Q4

REPORT INFORMATION
  Report Type: 
  Country: JP (occurrence: JP)
  Receive Date: 20120915
  Receipt Date: 20121029
  Transmission Date: 20130627
  Serious: Yes (Hospitalization)
  Sender: FDA-Public Use
  Company Number: JP-ABBOTT-12P-087-0977953-00

PATIENT
  Age: 76 Year
  Sex: Female
  Weight: 58 kg

DRUGS (6)
  1. HUMIRA [Suspect]
     Indication: RHEUMATOID ARTHRITIS
     Route: 058
     Dates: start: 20120622, end: 20120622
  2. TACROLIMUS MONOHYDRATE [Concomitant]
     Indication: RHEUMATOID ARTHRITIS
     Route: 048
     Dates: start: 20120425
  3. PREDNISOLONE [Concomitant]
     Indication: RHEUMATOID ARTHRITIS
     Route: 048
     Dates: start: 20120616
  4. CELECOXIB [Concomitant]
     Indication: RHEUMATOID ARTHRITIS
     Route: 048
     Dates: start: 20120212
  5. PREGABALIN [Concomitant]
     Indication: PAIN
     Route: 048
     Dates: start: 20120620, end: 20120620
  6. PREGABALIN [Concomitant]
     Dosage: in the morning and evening
     Dates: start: 20120621

REACTIONS (3)
  - Toxic skin eruption [Recovering/Resolving]
  - Rash generalised [Recovering/Resolving]
  - Injection site rash [Recovering/Resolving]
